FAERS Safety Report 11490094 (Version 1)
Quarter: 2015Q3

REPORT INFORMATION
  Report Type: Spontaneous
  Country: IT (occurrence: IT)
  Receive Date: 20150910
  Receipt Date: 20150910
  Transmission Date: 20151125
  Serious: Yes (Hospitalization, Other)
  Sender: FDA-Public Use
  Company Number: IT-WATSON-2015-18897

PATIENT
  Sex: Male
  Weight: 2 kg

DRUGS (6)
  1. METHYLDOPA. [Concomitant]
     Active Substance: METHYLDOPA
     Indication: MATERNAL EXPOSURE DURING PREGNANCY
     Dosage: 250 MG, DAILY
     Route: 064
  2. TELMISARTAN (UNKNOWN) [Suspect]
     Active Substance: TELMISARTAN
     Indication: MATERNAL EXPOSURE DURING PREGNANCY
     Dosage: 40 MG, DAILY
     Route: 064
  3. AMLODIPINE                         /00972402/ [Concomitant]
     Active Substance: AMLODIPINE BESYLATE
     Indication: HYPERTENSION
  4. HYDROCHLOROTHIAZIDE. [Concomitant]
     Active Substance: HYDROCHLOROTHIAZIDE
     Indication: HYPERTENSION
  5. AMLODIPINE                         /00972402/ [Concomitant]
     Active Substance: AMLODIPINE BESYLATE
     Indication: MATERNAL EXPOSURE DURING PREGNANCY
     Dosage: 5 MG, DAILY
     Route: 064
  6. HYDROCHLOROTHIAZIDE. [Concomitant]
     Active Substance: HYDROCHLOROTHIAZIDE
     Indication: MATERNAL EXPOSURE DURING PREGNANCY
     Dosage: 80 MG, DAILY
     Route: 064

REACTIONS (2)
  - Acute kidney injury [Recovered/Resolved]
  - Oligohydramnios [Unknown]
